FAERS Safety Report 5038175-6 (Version None)
Quarter: 2006Q2

REPORT INFORMATION
  Report Type: 
  Country: None (occurrence: None)
  Receive Date: 20060623
  Receipt Date: 20060612
  Transmission Date: 20061013
  Serious: Yes (Death, Other)
  Sender: FDA-Public Use
  Company Number: 2006064962

PATIENT
  Age: 73 Year
  Sex: Male
  Weight: 81.6475 kg

DRUGS (1)
  1. BEXTRA [Suspect]
     Indication: PAIN
     Dosage: 20 MG (20 MG, 1 IN 1 D), ORAL
     Route: 048
     Dates: start: 20031106, end: 20050317

REACTIONS (3)
  - CARDIOVASCULAR DISORDER [None]
  - CEREBROVASCULAR ACCIDENT [None]
  - INJURY [None]
